FAERS Safety Report 8142210-6 (Version None)
Quarter: 2012Q1

REPORT INFORMATION
  Report Type: 
  Country: None (occurrence: None)
  Receive Date: 20120103
  Receipt Date: 20111024
  Transmission Date: 20120608
  Serious: No
  Sender: FDA-Public Use
  Company Number: AE-2011-002627

PATIENT
  Age: 64 Year
  Sex: Female
  Weight: 50.8029 kg

DRUGS (8)
  1. RIBAVIRIN [Concomitant]
  2. MINERALS (MINERALS NOS) [Concomitant]
  3. FOSAMAX [Concomitant]
  4. CALCIUM CARBONATE [Concomitant]
  5. PEGASYS [Concomitant]
  6. MULTIVITAMIN [Concomitant]
  7. VITAMIN D [Concomitant]
  8. INCIVEK [Suspect]
     Dosage: 2250 MG (750 MG,1 IN 8 HR)
     Dates: start: 20110902

REACTIONS (3)
  - NAUSEA [None]
  - ANORECTAL DISCOMFORT [None]
  - ANAL PRURITUS [None]
